FAERS Safety Report 5206894-4 (Version None)
Quarter: 2006Q4

REPORT INFORMATION
  Report Type: 
  Country: None (occurrence: None)
  Receive Date: 20061030
  Receipt Date: 20060719
  Transmission Date: 20070319
  Serious: No
  Sender: FDA-Public Use
  Company Number: 255156

PATIENT
  Age: 76 Year
  Sex: Female
  Weight: 72.6 kg

DRUGS (9)
  1. NOVOLOG [Suspect]
     Indication: INSULIN-REQUIRING TYPE II DIABETES MELLITUS
     Dosage: SLIDING SCALE, SUBCUTANEOUS
     Route: 058
     Dates: start: 20060401
  2. LEVEMIR [Suspect]
     Indication: INSULIN-REQUIRING TYPE II DIABETES MELLITUS
     Dates: start: 20060401
  3. LANTUS [Concomitant]
  4. NOVOFINE (R) 31 (NEEDLE) [Concomitant]
  5. ULTRASEPT (TRIMETHOPRIM, SULFAMETHOXAZOLE) [Concomitant]
  6. ALTACE [Concomitant]
  7. DIGOXIN [Concomitant]
  8. PLAVIX [Concomitant]
  9. PREVACID [Concomitant]

REACTIONS (1)
  - RASH [None]
